FAERS Safety Report 23085038 (Version 2)
Quarter: 2023Q4

REPORT INFORMATION
  Report Type: Spontaneous
  Country: AT (occurrence: None)
  Receive Date: 20231019
  Receipt Date: 20231103
  Transmission Date: 20240109
  Serious: Yes (Other)
  Sender: FDA-Public Use
  Company Number: 2023A231362

PATIENT
  Age: 76 Year
  Sex: Female

DRUGS (5)
  1. FULVESTRANT [Suspect]
     Active Substance: FULVESTRANT
     Indication: Product used for unknown indication
     Dosage: 150 MG, BID (EACH 2X IN DAY 0,14,29 AND THEN EVERY 4 WEEKS)
     Route: 030
  2. RIBOCICLIB [Suspect]
     Active Substance: RIBOCICLIB
     Indication: Breast cancer metastatic
     Dosage: 400 MG (DAY 1 - 21, THEN 1 WEEK PAUSE)
     Route: 048
     Dates: start: 201808, end: 202302
  3. RIBOCICLIB [Suspect]
     Active Substance: RIBOCICLIB
     Indication: Breast cancer metastatic
     Dosage: 600 MG (DAY 1 - DAY 21, THEN 1 WEEK PAUSE)
     Route: 048
     Dates: start: 201710, end: 201808
  4. RIBOCICLIB [Suspect]
     Active Substance: RIBOCICLIB
     Indication: Breast cancer metastatic
     Dosage: 200 MG, QD (DAY 1 UNTIL 21, THEN 1 WEEK PAUSE)
     Route: 048
     Dates: start: 202303, end: 20231005
  5. PIQRAY [Suspect]
     Active Substance: ALPELISIB
     Indication: Product used for unknown indication
     Dosage: 150 MG, QD (2-0-0)
     Route: 048

REACTIONS (8)
  - Malignant neoplasm of pleura [Not Recovered/Not Resolved]
  - Breast cancer metastatic [Not Recovered/Not Resolved]
  - Metastases to thorax [Not Recovered/Not Resolved]
  - Malignant neoplasm progression [Not Recovered/Not Resolved]
  - Calcification metastatic [Unknown]
  - Leukopenia [Unknown]
  - Anaemia [Unknown]
  - Tumour marker increased [Not Recovered/Not Resolved]

NARRATIVE: CASE EVENT DATE: 20230401
